FAERS Safety Report 25786023 (Version 1)
Quarter: 2025Q3

REPORT INFORMATION
  Report Type: Spontaneous
  Country: EU (occurrence: EU)
  Receive Date: 20250910
  Receipt Date: 20250910
  Transmission Date: 20251021
  Serious: Yes (Other)
  Sender: Thea Pharma
  Company Number: EU-SYNOPTIS-031-L-0001

PATIENT
  Age: 78 Year
  Sex: Female

DRUGS (3)
  1. LATANOPROST [Suspect]
     Active Substance: LATANOPROST
     Indication: Glaucoma
     Route: 047
  2. BIMATOPROST [Suspect]
     Active Substance: BIMATOPROST
     Indication: Glaucoma
     Route: 047
  3. DORZOLAMIDE\TIMOLOL [Suspect]
     Active Substance: DORZOLAMIDE\TIMOLOL
     Indication: Glaucoma
     Route: 047

REACTIONS (3)
  - Visual acuity reduced [Recovering/Resolving]
  - Ocular surface disease [Recovering/Resolving]
  - Drug hypersensitivity [Recovering/Resolving]
